FAERS Safety Report 9785840 (Version 1)
Quarter: 2013Q4

REPORT INFORMATION
  Report Type: Spontaneous
  Country: IT (occurrence: IT)
  Receive Date: 20131227
  Receipt Date: 20131227
  Transmission Date: 20140711
  Serious: Yes (Death)
  Sender: FDA-Public Use
  Company Number: IT-B.I. PHARMACEUTICALS,INC./RIDGEFIELD-2013-BI-43678IT

PATIENT
  Age: 88 Year
  Sex: Male

DRUGS (3)
  1. PRADAXA [Suspect]
     Indication: ATRIAL FIBRILLATION
     Dosage: 220 MG
     Route: 048
     Dates: start: 20130915, end: 20131215
  2. ISOPTIN [Concomitant]
     Dosage: 120 MG
     Route: 048
  3. LANOXIN [Concomitant]
     Dosage: 0.125 MG
     Route: 048

REACTIONS (1)
  - Gastric haemorrhage [Fatal]
